FAERS Safety Report 7481835-8 (Version None)
Quarter: 2011Q2

REPORT INFORMATION
  Report Type: 
  Country: None (occurrence: None)
  Receive Date: 20110516
  Receipt Date: 20110512
  Transmission Date: 20111010
  Serious: Yes (Life-Threatening, Other)
  Sender: FDA-Public Use
  Company Number: PHHY2010JP82200

PATIENT
  Sex: Female
  Weight: 49 kg

DRUGS (8)
  1. INTERFERON ALFA [Concomitant]
     Indication: METASTATIC RENAL CELL CARCINOMA
     Dosage: 6000000 IU, UNK
     Dates: start: 20090522, end: 20090610
  2. AFINITOR [Suspect]
     Indication: METASTATIC RENAL CELL CARCINOMA
     Dosage: 10 MG, DAILY
     Route: 048
     Dates: start: 20101029, end: 20101111
  3. THYRADIN [Concomitant]
     Dosage: 100 UG, UNK
     Route: 048
     Dates: start: 20090101
  4. WARFARIN SODIUM [Concomitant]
     Indication: METASTATIC RENAL CELL CARCINOMA
     Dosage: 2.25 MG, UNK
     Route: 048
     Dates: start: 20090501
  5. ALLOPURINOL [Concomitant]
     Dosage: 100 MG, UNK
     Route: 048
     Dates: start: 20090101
  6. SUNITINIB MALATE [Concomitant]
     Indication: METASTATIC RENAL CELL CARCINOMA
     Dosage: 37.5 MG, UNK
     Route: 048
     Dates: start: 20090612, end: 20091119
  7. NEXAVAR [Concomitant]
     Indication: METASTATIC RENAL CELL CARCINOMA
     Dosage: 400 MG, UNK
     Route: 048
     Dates: start: 20100330, end: 20101026
  8. OMEPRAL [Concomitant]
     Dosage: 20 MG, UNK
     Route: 048
     Dates: start: 20090101

REACTIONS (3)
  - ANAEMIA [None]
  - PLATELET COUNT DECREASED [None]
  - HAEMORRHAGIC DIATHESIS [None]
